FAERS Safety Report 25808148 (Version 2)
Quarter: 2025Q4

REPORT INFORMATION
  Report Type: Spontaneous
  Country: US (occurrence: US)
  Receive Date: 20250916
  Receipt Date: 20251210
  Transmission Date: 20260117
  Serious: Yes (Other)
  Sender: BAYER HEALTHCARE PHARMACEUTICALS INC.
  Company Number: US-BAYER-2025A121609

PATIENT
  Age: 37 Year
  Sex: Male

DRUGS (4)
  1. KOVALTRY [Suspect]
     Active Substance: ANTIHEMOPHILIC FACTOR, HUMAN RECOMBINANT
     Indication: Factor VIII deficiency
     Dosage: STRENGTH 2000;2000 IU INTERNATIONAL UNIT(S)
     Route: 042
     Dates: start: 202303
  2. KOVALTRY [Suspect]
     Active Substance: ANTIHEMOPHILIC FACTOR, HUMAN RECOMBINANT
     Indication: Prophylaxis
     Dosage: ONE DOSE OF KOVALTRY WAS USED FOR BLEED.
     Route: 042
     Dates: start: 20250722, end: 20250722
  3. KOVALTRY [Suspect]
     Active Substance: ANTIHEMOPHILIC FACTOR, HUMAN RECOMBINANT
     Indication: Factor VIII deficiency
     Dosage: ONE DOSE OF KOVALTRY WAS USED FOR BLEED.
     Route: 042
     Dates: start: 20250826, end: 20250826
  4. ALTUVIIIO [Concomitant]
     Active Substance: EFANESOCTOCOG ALFA
     Dosage: UNK

REACTIONS (2)
  - Haemorrhage [None]
  - Haemorrhage [None]

NARRATIVE: CASE EVENT DATE: 20250722
